FAERS Safety Report 5121136-6 (Version None)
Quarter: 2006Q4

REPORT INFORMATION
  Report Type: 
  Country: None (occurrence: None)
  Receive Date: 20061002
  Receipt Date: 20060918
  Transmission Date: 20070319
  Serious: Yes (Other)
  Sender: FDA-Public Use
  Company Number: CA200609004747

PATIENT
  Age: 56 Year
  Sex: Female

DRUGS (10)
  1. FORTEO [Suspect]
     Indication: OSTEOPOROSIS
     Dosage: 20 UG, DAILY (1/D)
     Dates: start: 20050616
  2. FORTEO [Concomitant]
  3. ARAVA [Concomitant]
  4. NAPROXEN [Concomitant]
  5. PREDNISONE TAB [Concomitant]
  6. FLEXERIL [Concomitant]
  7. PANTOPRAZOLE SODIUM [Concomitant]
  8. VITAMIN D [Concomitant]
  9. VITAMIN E [Concomitant]
  10. CALCIUM GLUCONATE [Concomitant]

REACTIONS (3)
  - MEMORY IMPAIRMENT [None]
  - PETIT MAL EPILEPSY [None]
  - THERMAL BURN [None]
